FAERS Safety Report 14727284 (Version 1)
Quarter: 2018Q2

REPORT INFORMATION
  Report Type: Spontaneous
  Country: US (occurrence: US)
  Receive Date: 20180402
  Receipt Date: 20180402
  Transmission Date: 20180711
  Serious: Yes (Other)
  Sender: FDA-Public Use
  Company Number: None

PATIENT
  Age: 65 Year
  Sex: Male
  Weight: 101.25 kg

DRUGS (11)
  1. BABY ASPIRIN [Concomitant]
     Active Substance: ASPIRIN
  2. FISH OIL [Concomitant]
     Active Substance: FISH OIL
  3. HIBICLENS [Suspect]
     Active Substance: CHLORHEXIDINE GLUCONATE
     Indication: THERAPEUTIC SKIN CARE TOPICAL
     Route: 061
     Dates: start: 20180327, end: 20180327
  4. GLYBURIDE. [Concomitant]
     Active Substance: GLYBURIDE
  5. METFORMIN [Concomitant]
     Active Substance: METFORMIN HYDROCHLORIDE
  6. LISINOPRIL. [Concomitant]
     Active Substance: LISINOPRIL
  7. HIBICLENS [Suspect]
     Active Substance: CHLORHEXIDINE GLUCONATE
  8. TAMSULIN [Concomitant]
  9. VITAMIN C [Concomitant]
     Active Substance: ASCORBIC ACID
  10. SIMVASTATIN. [Concomitant]
     Active Substance: SIMVASTATIN
  11. MULTI VITAMIN [Concomitant]
     Active Substance: VITAMINS

REACTIONS (3)
  - Application site rash [None]
  - Documented hypersensitivity to administered product [None]
  - Vascular access site rash [None]

NARRATIVE: CASE EVENT DATE: 20180327
